FAERS Safety Report 13896003 (Version 1)
Quarter: 2017Q3

REPORT INFORMATION
  Report Type: Spontaneous
  Country: US (occurrence: US)
  Receive Date: 20170822
  Receipt Date: 20170822
  Transmission Date: 20171127
  Serious: Yes (Death)
  Sender: FDA-Public Use
  Company Number: None

PATIENT
  Age: 83 Year
  Sex: Male
  Weight: 60.75 kg

DRUGS (9)
  1. VITAMIN B12 [Concomitant]
     Active Substance: CYANOCOBALAMIN
  2. ALLOPURINOL. [Concomitant]
     Active Substance: ALLOPURINOL
  3. JADENU [Suspect]
     Active Substance: DEFERASIROX
     Indication: ANAEMIA
     Route: 048
     Dates: start: 20170801, end: 20170822
  4. JADENU [Suspect]
     Active Substance: DEFERASIROX
     Indication: ANAEMIA
     Route: 048
     Dates: start: 20170801, end: 20170822
  5. JADENU [Suspect]
     Active Substance: DEFERASIROX
     Indication: HAEMOCHROMATOSIS
     Route: 048
     Dates: start: 20170801, end: 20170822
  6. JADENU [Suspect]
     Active Substance: DEFERASIROX
     Indication: HAEMOCHROMATOSIS
     Route: 048
     Dates: start: 20170801, end: 20170822
  7. ASPIRIN. [Concomitant]
     Active Substance: ASPIRIN
  8. XTANDI [Concomitant]
     Active Substance: ENZALUTAMIDE
  9. REMERON [Concomitant]
     Active Substance: MIRTAZAPINE

REACTIONS (1)
  - Death [None]
